FAERS Safety Report 9939889 (Version 1)
Quarter: 2014Q1

REPORT INFORMATION
  Report Type: Report from Study
  Country: US (occurrence: US)
  Receive Date: 20140303
  Receipt Date: 20140303
  Transmission Date: 20141002
  Serious: No
  Sender: FDA-Public Use
  Company Number: US-ABBVIE-13P-163-1037344-00

PATIENT
  Age: 39 Year
  Sex: Male

DRUGS (1)
  1. HUMIRA [Suspect]
     Indication: PRODUCT USED FOR UNKNOWN INDICATION
     Route: 058
     Dates: start: 20120723, end: 20121204

REACTIONS (5)
  - Blood pressure increased [Unknown]
  - Rash [Unknown]
  - Bone pain [Unknown]
  - White blood cell count increased [Unknown]
  - Drug ineffective [Unknown]
